FAERS Safety Report 7906369-5 (Version None)
Quarter: 2011Q4

REPORT INFORMATION
  Report Type: 
  Country: None (occurrence: None)
  Receive Date: 20111110
  Receipt Date: 20111014
  Transmission Date: 20120403
  Serious: No
  Sender: FDA-Public Use
  Company Number: US-BAYER-2011-099853

PATIENT
  Sex: Female

DRUGS (2)
  1. MIRENA [Suspect]
     Dosage: 20 MCG/24HR, CONT
     Dates: start: 20100101
  2. MIRENA [Suspect]
     Dosage: UNK
     Dates: start: 20080101

REACTIONS (7)
  - DEVICE EXPULSION [None]
  - DIZZINESS [None]
  - AMENORRHOEA [None]
  - ALOPECIA [None]
  - MEDICAL DEVICE COMPLICATION [None]
  - VAGINAL DISCHARGE [None]
  - BREAST TENDERNESS [None]
